FAERS Safety Report 9421969 (Version 4)
Quarter: 2013Q3

REPORT INFORMATION
  Report Type: Report from Study
  Country: US (occurrence: US)
  Receive Date: 20130726
  Receipt Date: 20130827
  Transmission Date: 20140515
  Serious: Yes (Hospitalization)
  Sender: FDA-Public Use
  Company Number: US-JNJFOC-20130712135

PATIENT
  Age: 19 Year
  Sex: Female
  Weight: 55.4 kg

DRUGS (3)
  1. REMICADE [Suspect]
     Indication: CROHN^S DISEASE
     Route: 042
     Dates: start: 20100305, end: 20110318
  2. TYSABRI [Concomitant]
     Indication: CROHN^S DISEASE
     Route: 065
     Dates: start: 20121214
  3. TYSABRI [Concomitant]
     Indication: CROHN^S DISEASE
     Route: 065
     Dates: start: 20130607

REACTIONS (1)
  - Small intestinal obstruction [Recovered/Resolved]
